FAERS Safety Report 6174155-5 (Version None)
Quarter: 2009Q2

REPORT INFORMATION
  Report Type: 
  Country: None (occurrence: None)
  Receive Date: 20090430
  Receipt Date: 20080414
  Transmission Date: 20091009
  Serious: No
  Sender: FDA-Public Use
  Company Number: US-ASTRAZENECA-2008UW07666

PATIENT
  Age: 28 Year
  Sex: Male
  Weight: 62.6 kg

DRUGS (3)
  1. NEXIUM [Suspect]
     Indication: GASTROOESOPHAGEAL REFLUX DISEASE
     Route: 048
  2. LIQUID CHLOROPHYLL [Concomitant]
  3. PEPPERMINT OIL CAPSULES [Concomitant]

REACTIONS (4)
  - FAECES DISCOLOURED [None]
  - HEADACHE [None]
  - NAUSEA [None]
  - TESTICULAR DISORDER [None]
